FAERS Safety Report 7048923-1 (Version None)
Quarter: 2010Q4

REPORT INFORMATION
  Report Type: 
  Country: None (occurrence: None)
  Receive Date: 20101008
  Receipt Date: 20100922
  Transmission Date: 20110411
  Serious: Yes (Other)
  Sender: FDA-Public Use
  Company Number: ACO_02368_2010

PATIENT
  Sex: Female
  Weight: 68.4932 kg

DRUGS (11)
  1. AMPYRA [Suspect]
     Indication: GAIT DISTURBANCE
     Dosage: (10 MG 1X)
     Dates: start: 20100801, end: 20100801
  2. REBIF [Concomitant]
  3. CLONAZEPAM [Concomitant]
  4. OPANA [Concomitant]
  5. OXYCODONE HCL [Concomitant]
  6. ADDERALL 10 [Concomitant]
  7. LISINOPRIL [Concomitant]
  8. FLUOXETINE [Concomitant]
  9. METAMUCIL /01430601/ [Concomitant]
  10. LEVOTHYROXINE [Concomitant]
  11. VITAMIN D [Concomitant]

REACTIONS (19)
  - ACTIVITIES OF DAILY LIVING IMPAIRED [None]
  - BACK PAIN [None]
  - BALANCE DISORDER [None]
  - BURNING SENSATION [None]
  - CHEST DISCOMFORT [None]
  - CONSTIPATION [None]
  - DIZZINESS [None]
  - DYSPHAGIA [None]
  - DYSPNOEA [None]
  - EYE DISORDER [None]
  - GASTROINTESTINAL PAIN [None]
  - HEADACHE [None]
  - INSOMNIA [None]
  - MULTIPLE SCLEROSIS RELAPSE [None]
  - NASAL DISCOMFORT [None]
  - NAUSEA [None]
  - OROPHARYNGEAL PAIN [None]
  - URINARY TRACT INFECTION [None]
  - URTICARIA [None]
